FAERS Safety Report 24363174 (Version 1)
Quarter: 2024Q3

REPORT INFORMATION
  Report Type: Spontaneous
  Country: US (occurrence: US)
  Receive Date: 20240925
  Receipt Date: 20240925
  Transmission Date: 20241016
  Serious: No
  Sender: ELI LILLY AND CO
  Company Number: US-ELI_LILLY_AND_COMPANY-US202409014458

PATIENT
  Age: 35 Year
  Sex: Female

DRUGS (4)
  1. TALTZ [Suspect]
     Active Substance: IXEKIZUMAB
     Indication: Nail disorder
     Dosage: UNK UNK, OTHER (EVERY 2 WEEKS)
     Route: 065
     Dates: start: 202405
  2. TALTZ [Suspect]
     Active Substance: IXEKIZUMAB
     Indication: Nail disorder
     Dosage: UNK UNK, OTHER (EVERY 2 WEEKS)
     Route: 065
     Dates: start: 202405
  3. TALTZ [Suspect]
     Active Substance: IXEKIZUMAB
     Dosage: UNK UNK, OTHER (EVERY 4 WEEKS)
     Route: 065
  4. TALTZ [Suspect]
     Active Substance: IXEKIZUMAB
     Dosage: UNK UNK, OTHER (EVERY 4 WEEKS)
     Route: 065

REACTIONS (3)
  - Off label use [Unknown]
  - Incorrect dose administered [Unknown]
  - Injection site pain [Unknown]

NARRATIVE: CASE EVENT DATE: 20240501
